FAERS Safety Report 4863203-8 (Version None)
Quarter: 2005Q4

REPORT INFORMATION
  Report Type: 
  Country: None (occurrence: None)
  Receive Date: 20051201
  Receipt Date: 20050721
  Transmission Date: 20060501
  Serious: No
  Sender: FDA-Public Use
  Company Number: 2005PV000541

PATIENT
  Age: 55 Year
  Sex: Female
  Weight: 135.6255 kg

DRUGS (10)
  1. BYETTA [Suspect]
     Indication: DIABETES MELLITUS NON-INSULIN-DEPENDENT
     Dosage: 5 MCG;  BID; SC
     Route: 058
     Dates: start: 20050720
  2. HUMALOG [Concomitant]
  3. LANTUS [Concomitant]
  4. METFORMIN [Concomitant]
  5. INDOCIN [Concomitant]
  6. MULTIVITAMIN [Concomitant]
  7. ASPIRIN [Concomitant]
  8. VITAMIN E [Concomitant]
  9. ZANTAC [Concomitant]
  10. LANTUS [Concomitant]

REACTIONS (3)
  - DYSGEUSIA [None]
  - DYSPEPSIA [None]
  - SALIVARY HYPERSECRETION [None]
